FAERS Safety Report 6764542-6 (Version None)
Quarter: 2010Q2

REPORT INFORMATION
  Report Type: 
  Country: None (occurrence: None)
  Receive Date: 20100609
  Receipt Date: 20100412
  Transmission Date: 20101027
  Serious: No
  Sender: FDA-Public Use
  Company Number: 2010008697

PATIENT
  Age: 2 Year
  Sex: Male
  Weight: 13.6079 kg

DRUGS (2)
  1. CHILDREN'S ZYRTEC ALLERGY [Suspect]
     Indication: LACRIMATION INCREASED
     Dosage: ORAL
     Route: 048
     Dates: start: 20100401
  2. ALL OTHER NON THERAPEUTIC PRODUCTS (ALL OTHER NON THERAPEUTIC PRODUCTS [Concomitant]

REACTIONS (1)
  - IRRITABILITY [None]
